FAERS Safety Report 4837413-X (Version None)
Quarter: 2005Q4

REPORT INFORMATION
  Report Type: 
  Country: None (occurrence: None)
  Receive Date: 20051123
  Receipt Date: 20051123
  Transmission Date: 20060501
  Serious: Yes (Hospitalization)
  Sender: FDA-Public Use
  Company Number: None

PATIENT
  Sex: Female
  Weight: 61 kg

DRUGS (3)
  1. CARVEDILOL [Suspect]
  2. FUROSEMIDE [Suspect]
  3. SPIRONOLACTONE [Suspect]

REACTIONS (2)
  - DEHYDRATION [None]
  - HYPOTENSION [None]
